FAERS Safety Report 8025446-4 (Version None)
Quarter: 2012Q1

REPORT INFORMATION
  Report Type: 
  Country: None (occurrence: None)
  Receive Date: 20120105
  Receipt Date: 20111227
  Transmission Date: 20120608
  Serious: Yes (Hospitalization, Other)
  Sender: FDA-Public Use
  Company Number: US-ELI_LILLY_AND_COMPANY-US201009007048

PATIENT
  Sex: Female

DRUGS (20)
  1. SIMETHICONE [Concomitant]
     Indication: FLATULENCE
     Dosage: 80 MG, UNKNOWN
     Route: 048
  2. FORTEO [Suspect]
     Dosage: 20 UG, QD
     Route: 058
  3. FORTEO [Suspect]
     Dosage: 20 UG, QD
     Route: 058
     Dates: start: 20111101
  4. FORTEO [Suspect]
     Dosage: 20 UG, DAILY (1/D)
     Route: 058
  5. FORTEO [Suspect]
     Dosage: 20 UG, DAILY (1/D)
     Route: 058
  6. FORTEO [Suspect]
     Dosage: 20 UG, QD
     Route: 058
  7. CALCIUM CARBONATE [Concomitant]
  8. CALCIUM ACETATE [Concomitant]
  9. ZOFRAN [Concomitant]
  10. FORTEO [Suspect]
     Dosage: 20 UG, QD
     Route: 058
  11. OMEPRAZOLE [Concomitant]
  12. COLACE [Concomitant]
  13. PHENERGAN [Concomitant]
  14. FORTEO [Suspect]
     Indication: OSTEOPOROSIS
     Dosage: 20 UG, DAILY (1/D)
     Route: 058
     Dates: start: 20100830
  15. ASPIRIN [Concomitant]
  16. FORTEO [Suspect]
     Dosage: 20 UG, DAILY (1/D)
     Route: 058
  17. FORTEO [Suspect]
     Dosage: 20 UG, QD
     Route: 058
  18. DILAUDID [Concomitant]
  19. FORTEO [Suspect]
     Dosage: 20 UG, QD
     Route: 058
  20. LOVENOX [Concomitant]

REACTIONS (22)
  - FLATULENCE [None]
  - VOMITING [None]
  - PAIN [None]
  - ABDOMINAL DISCOMFORT [None]
  - INJECTION SITE HAEMATOMA [None]
  - ARTHRALGIA [None]
  - MEMORY IMPAIRMENT [None]
  - UTERINE HAEMORRHAGE [None]
  - BLOOD THYROID STIMULATING HORMONE INCREASED [None]
  - FEEDING DISORDER [None]
  - CONSTIPATION [None]
  - UTERINE DISORDER [None]
  - PAIN IN EXTREMITY [None]
  - INJECTION SITE PAIN [None]
  - INTESTINAL OBSTRUCTION [None]
  - WEIGHT BEARING DIFFICULTY [None]
  - ADVERSE EVENT [None]
  - INJECTION SITE HAEMORRHAGE [None]
  - INSOMNIA [None]
  - NAUSEA [None]
  - HYDROMETRA [None]
  - UTERINE CANCER [None]
